FAERS Safety Report 13901572 (Version 2)
Quarter: 2019Q3

REPORT INFORMATION
  Report Type: Spontaneous
  Country: US (occurrence: US)
  Receive Date: 20170824
  Receipt Date: 20190711
  Transmission Date: 20191004
  Serious: No
  Sender: FDA-Public Use
  Company Number: US-GILEAD-2017-0289574

PATIENT
  Age: 54 Year
  Sex: Female

DRUGS (5)
  1. ESCITALOPRAM OXALATE. [Concomitant]
     Active Substance: ESCITALOPRAM OXALATE
  2. PEGASYS [Concomitant]
     Active Substance: PEGINTERFERON ALFA-2A
     Indication: CHRONIC HEPATITIS C
     Dosage: UNK
  3. RIBASPHERE [Concomitant]
     Active Substance: RIBAVIRIN
     Indication: CHRONIC HEPATITIS C
     Dosage: UNK
     Dates: start: 20140427
  4. LEXAPRO [Concomitant]
     Active Substance: ESCITALOPRAM OXALATE
     Indication: DEPRESSION
     Route: 065
  5. SOVALDI [Suspect]
     Active Substance: SOFOSBUVIR
     Indication: CHRONIC HEPATITIS C
     Dosage: 400 MG, QD
     Route: 065
     Dates: start: 20140427

REACTIONS (13)
  - Energy increased [Unknown]
  - Urinary tract infection [Recovering/Resolving]
  - Logorrhoea [Unknown]
  - Weight decreased [Unknown]
  - Psychomotor hyperactivity [Recovered/Resolved]
  - Feeling abnormal [Unknown]
  - Depression [Unknown]
  - Irritability [Unknown]
  - Fatigue [Unknown]
  - Violence-related symptom [Unknown]
  - Anxiety [Recovered/Resolved]
  - Anaemia [Unknown]
  - Red blood cell count decreased [Unknown]

NARRATIVE: CASE EVENT DATE: 201406
